FAERS Safety Report 6237603-8 (Version None)
Quarter: 2009Q2

REPORT INFORMATION
  Report Type: 
  Country: None (occurrence: None)
  Receive Date: 20090619
  Receipt Date: 20090603
  Transmission Date: 20091009
  Serious: Yes (Death)
  Sender: FDA-Public Use
  Company Number: IT-MERCK-0906ITA00028

PATIENT
  Age: 82 Year
  Sex: Female

DRUGS (1)
  1. ZOCOR [Suspect]
     Indication: HYPERLIPIDAEMIA
     Route: 048

REACTIONS (3)
  - CARDIAC FAILURE ACUTE [None]
  - METABOLIC DISORDER [None]
  - MYELODYSPLASTIC SYNDROME [None]
